FAERS Safety Report 4922639-7 (Version None)
Quarter: 2006Q1

REPORT INFORMATION
  Report Type: 
  Country: None (occurrence: None)
  Receive Date: 20060223
  Receipt Date: 20060223
  Transmission Date: 20060701
  Serious: No
  Sender: FDA-Public Use
  Company Number: None

PATIENT
  Age: 37 Year
  Sex: Female
  Weight: 59 kg

DRUGS (4)
  1. TIGECYCLINE [Suspect]
     Indication: WOUND INFECTION
     Dosage: 50 MG IV Q 12 HOURS
     Route: 042
     Dates: start: 20050714, end: 20050721
  2. CLARITHROMYCIN [Concomitant]
  3. AMIKACIN [Concomitant]
  4. LINEZOLID [Concomitant]

REACTIONS (2)
  - NAUSEA [None]
  - VOMITING [None]
